FAERS Safety Report 15766345 (Version 1)
Quarter: 2018Q4

REPORT INFORMATION
  Report Type: Spontaneous
  Country: FR (occurrence: FR)
  Receive Date: 20181227
  Receipt Date: 20181227
  Transmission Date: 20190205
  Serious: Yes (Life-Threatening)
  Sender: FDA-Public Use
  Company Number: FR-TEVA-2018-FR-990794

PATIENT
  Age: 78 Year
  Sex: Female
  Weight: 75.3 kg

DRUGS (8)
  1. MONOCRIXO [Concomitant]
     Active Substance: TRAMADOL HYDROCHLORIDE
  2. ACICLOVIR [Suspect]
     Active Substance: ACYCLOVIR
     Indication: MENINGITIS
     Dosage: 210 MILLIGRAM DAILY;
     Route: 065
     Dates: start: 20181029, end: 20181105
  3. PANTOPRAZOLE [Concomitant]
     Active Substance: PANTOPRAZOLE
  4. AMOXICILLINE [Suspect]
     Active Substance: AMOXICILLIN
     Indication: MENINGITIS
     Dosage: 12 GRAM DAILY;
     Route: 065
     Dates: start: 20181029, end: 20181105
  5. LOVENOX [Suspect]
     Active Substance: ENOXAPARIN SODIUM
     Indication: PRODUCT USED FOR UNKNOWN INDICATION
     Dosage: .7 ML DAILY;
     Route: 058
  6. GENTAMICINE [Suspect]
     Active Substance: GENTAMICIN
     Indication: MENINGITIS
     Dosage: 210 MILLIGRAM DAILY;
     Dates: start: 20181029, end: 20181105
  7. SPIRONOLACTONE. [Suspect]
     Active Substance: SPIRONOLACTONE
     Indication: HYPERTENSION
     Route: 048
  8. FENOFIBRATE. [Suspect]
     Active Substance: FENOFIBRATE
     Indication: PRODUCT USED FOR UNKNOWN INDICATION
     Route: 048

REACTIONS (1)
  - Acute kidney injury [Recovered/Resolved]

NARRATIVE: CASE EVENT DATE: 20181105
